FAERS Safety Report 8157455-9 (Version None)
Quarter: 2012Q1

REPORT INFORMATION
  Report Type: 
  Country: None (occurrence: None)
  Receive Date: 20120217
  Receipt Date: 20120213
  Transmission Date: 20120608
  Serious: Yes (Death, Other)
  Sender: FDA-Public Use
  Company Number: 2012SP008231

PATIENT
  Age: 34 Year
  Sex: Female

DRUGS (2)
  1. RIBAVIRIN [Suspect]
     Indication: HEPATITIS C
     Dates: start: 20111119
  2. PEG-INTRON [Suspect]
     Indication: HEPATITIS C
     Dates: start: 20111119

REACTIONS (1)
  - DEATH [None]
